FAERS Safety Report 4952873-1 (Version None)
Quarter: 2006Q1

REPORT INFORMATION
  Report Type: 
  Country: None (occurrence: None)
  Receive Date: 20060320
  Receipt Date: 20060307
  Transmission Date: 20060701
  Serious: Yes (Other)
  Sender: FDA-Public Use
  Company Number: 2006034355

PATIENT
  Sex: Male

DRUGS (2)
  1. ARTHROTEC [Suspect]
     Indication: ARTHRITIS
     Dosage: UNKNOWN
     Route: 065
     Dates: end: 20060101
  2. CELEBREX [Suspect]
     Indication: ARTHRITIS
     Dosage: UNK (200 MG, UNKNOWN), UNKNOWN
     Route: 065
     Dates: start: 20060101

REACTIONS (3)
  - CARDIAC OPERATION [None]
  - DRUG INEFFECTIVE [None]
  - PHARMACEUTICAL PRODUCT COMPLAINT [None]
